FAERS Safety Report 8003478-X (Version None)
Quarter: 2011Q4

REPORT INFORMATION
  Report Type: 
  Country: None (occurrence: None)
  Receive Date: 20111222
  Receipt Date: 20111220
  Transmission Date: 20120403
  Serious: Yes (Other)
  Sender: FDA-Public Use
  Company Number: US-PFIZER INC-2011310324

PATIENT
  Sex: Female
  Weight: 81.633 kg

DRUGS (2)
  1. CHANTIX [Suspect]
     Dosage: 1 MG, 2X/DAY
     Dates: start: 20111101, end: 20111101
  2. CHANTIX [Suspect]
     Indication: SMOKING CESSATION THERAPY
     Dosage: 0.5 MG, DAILY
     Dates: start: 20111101, end: 20111101

REACTIONS (5)
  - THROAT TIGHTNESS [None]
  - DEPRESSED MOOD [None]
  - ORAL PAIN [None]
  - RASH MACULAR [None]
  - SKIN EXFOLIATION [None]
